FAERS Safety Report 9207860 (Version 1)
Quarter: 2013Q2

REPORT INFORMATION
  Report Type: Report from Study
  Country: KR (occurrence: KR)
  Receive Date: 20130403
  Receipt Date: 20130403
  Transmission Date: 20140414
  Serious: Yes (Other)
  Sender: FDA-Public Use
  Company Number: KR-NAPPMUNDI-GBR-2013-0013593

PATIENT
  Age: 62 Year
  Sex: Female

DRUGS (7)
  1. OXYCODONE [Suspect]
     Indication: CANCER PAIN
     Dosage: UNK
     Route: 048
     Dates: start: 20110123
  2. FENTANYL [Concomitant]
     Dosage: UNK
     Dates: start: 20110319
  3. TRAMADOL HYDROCHLORIDE [Concomitant]
     Dosage: UNK
     Dates: start: 20110321
  4. MORPHINE SULFATE [Concomitant]
     Dosage: UNK
     Dates: start: 20110322
  5. ACETAMINOPHEN [Concomitant]
     Dosage: UNK
     Dates: start: 20110321
  6. BUSPIRONE HYDROCHLORIDE [Concomitant]
     Dosage: UNK
     Dates: start: 20110316
  7. ESCITALOPRAM OXALATE [Concomitant]
     Dosage: UNK
     Dates: start: 20110322

REACTIONS (4)
  - Delirium [Unknown]
  - Dry mouth [Unknown]
  - Nausea [Unknown]
  - Asthenia [Unknown]
